FAERS Safety Report 6360279-6 (Version None)
Quarter: 2009Q3

REPORT INFORMATION
  Report Type: 
  Country: None (occurrence: None)
  Receive Date: 20090917
  Receipt Date: 20090903
  Transmission Date: 20100115
  Serious: Yes (Hospitalization, Other)
  Sender: FDA-Public Use
  Company Number: GB-MYLANLABS-2009S1015553

PATIENT
  Age: 23 Year
  Sex: Female

DRUGS (4)
  1. DIPYRIDAMOLE [Suspect]
     Indication: ANTIPLATELET THERAPY
  2. SUMATRIPTAN SUCCINATE [Suspect]
     Indication: HEADACHE
     Route: 048
  3. ASPIRIN [Suspect]
     Indication: ANTIPLATELET THERAPY
  4. PARACETAMOL [Concomitant]
     Indication: HEADACHE

REACTIONS (3)
  - GINGIVAL BLEEDING [None]
  - ISCHAEMIC STROKE [None]
  - THROMBOCYTOPENIA [None]
